FAERS Safety Report 14497369 (Version 17)
Quarter: 2022Q2

REPORT INFORMATION
  Report Type: Spontaneous
  Country: BR (occurrence: BR)
  Receive Date: 20180207
  Receipt Date: 20220628
  Transmission Date: 20220720
  Serious: Yes (Hospitalization)
  Sender: FDA-Public Use
  Company Number: BR-GLAXOSMITHKLINE-BR2016GSK066828

PATIENT

DRUGS (6)
  1. BENLYSTA [Suspect]
     Active Substance: BELIMUMAB
     Indication: Systemic lupus erythematosus
     Dosage: 510 MG, UNK
     Dates: start: 20160504
  2. LOSARTAN [Concomitant]
     Active Substance: LOSARTAN
     Indication: Ill-defined disorder
     Dosage: 1 DF, BID (12/12 H)
  3. PROZAC (FLUOXETINE HCL) [Concomitant]
     Indication: Ill-defined disorder
     Dosage: 250 MG, UNK
  4. ANNITA (NITAZOXANIDE) [Concomitant]
     Indication: Helminthic infection
     Dosage: 500 MG, UNK
  5. HYDROXYCHLOROQUINE SULFATE [Concomitant]
     Active Substance: HYDROXYCHLOROQUINE SULFATE
     Indication: Blood pressure measurement
     Dosage: UNK
  6. COVID-19 VACCINE [Concomitant]
     Indication: COVID-19 prophylaxis
     Dosage: UNK

REACTIONS (18)
  - Herpes virus infection [Recovered/Resolved]
  - Influenza [Unknown]
  - Weight decreased [Unknown]
  - Feeling abnormal [Unknown]
  - Ill-defined disorder [Unknown]
  - Weight increased [Recovered/Resolved]
  - Oropharyngeal pain [Unknown]
  - Pain [Unknown]
  - Skin mass [Unknown]
  - Pharyngeal inflammation [Not Recovered/Not Resolved]
  - Back pain [Unknown]
  - Lung disorder [Unknown]
  - Inappropriate schedule of product administration [Not Recovered/Not Resolved]
  - Product dose omission issue [Not Recovered/Not Resolved]
  - Accidental underdose [Unknown]
  - Circumstance or information capable of leading to medication error [Recovered/Resolved]
  - Social problem [Unknown]
  - Product availability issue [Unknown]

NARRATIVE: CASE EVENT DATE: 20211201
